FAERS Safety Report 4429576-5 (Version None)
Quarter: 2004Q3

REPORT INFORMATION
  Report Type: 
  Country: None (occurrence: None)
  Receive Date: 20040816
  Receipt Date: 20040802
  Transmission Date: 20050211
  Serious: Yes (Other)
  Sender: FDA-Public Use
  Company Number: GBR-2004-0001165

PATIENT
  Sex: Male

DRUGS (2)
  1. UNIPHYL [Suspect]
     Indication: DYSPNOEA
  2. SERTRALINE HCL [Concomitant]

REACTIONS (1)
  - MANIA [None]
